FAERS Safety Report 11516085 (Version 1)
Quarter: 2015Q3

REPORT INFORMATION
  Report Type: Spontaneous
  Country: IT (occurrence: IT)
  Receive Date: 20150917
  Receipt Date: 20150917
  Transmission Date: 20151125
  Serious: Yes (Other)
  Sender: FDA-Public Use
  Company Number: IT-HOSPIRA-2989460

PATIENT
  Age: 65 Year
  Sex: Male

DRUGS (8)
  1. IRINOTECAN HYDROCHLORIDE. [Suspect]
     Active Substance: IRINOTECAN HYDROCHLORIDE
     Indication: RECTOSIGMOID CANCER RECURRENT
     Dosage: CYCLE 1
     Route: 041
     Dates: start: 20150318, end: 20150318
  2. ZALTRAP                            /06225401/ [Suspect]
     Active Substance: AFLIBERCEPT
     Indication: RECTOSIGMOID CANCER RECURRENT
     Dosage: CYCLE 8
     Route: 041
     Dates: start: 20150727, end: 20150727
  3. METOCLOPRAMIDE. [Concomitant]
     Active Substance: METOCLOPRAMIDE
     Indication: PRODUCT USED FOR UNKNOWN INDICATION
     Dates: start: 20150415, end: 20150824
  4. FLUOROURACIL. [Suspect]
     Active Substance: FLUOROURACIL
     Indication: RECTOSIGMOID CANCER RECURRENT
     Dosage: CYCLE 8
     Route: 041
     Dates: start: 20150727, end: 20150727
  5. TERAZOSINA [Concomitant]
     Indication: PRODUCT USED FOR UNKNOWN INDICATION
     Dates: start: 20120301, end: 20150824
  6. IRINOTECAN HYDROCHLORIDE. [Suspect]
     Active Substance: IRINOTECAN HYDROCHLORIDE
     Indication: RECTOSIGMOID CANCER RECURRENT
     Dosage: CYCLE 8
     Route: 041
     Dates: start: 20150727, end: 20150727
  7. ZALTRAP                            /06225401/ [Suspect]
     Active Substance: AFLIBERCEPT
     Indication: RECTOSIGMOID CANCER RECURRENT
     Dosage: CYCLE 1
     Route: 041
     Dates: start: 20150318, end: 20150318
  8. FLUOROURACIL. [Suspect]
     Active Substance: FLUOROURACIL
     Indication: RECTOSIGMOID CANCER RECURRENT
     Dosage: CYCLE 1
     Route: 041
     Dates: start: 20150318, end: 20150318

REACTIONS (3)
  - Diarrhoea [Recovered/Resolved]
  - Neutropenia [Recovered/Resolved]
  - Hypertension [Recovered/Resolved]

NARRATIVE: CASE EVENT DATE: 20150803
